FAERS Safety Report 13107699 (Version 3)
Quarter: 2017Q2

REPORT INFORMATION
  Report Type: Report from Study
  Country: US (occurrence: US)
  Receive Date: 20170112
  Receipt Date: 20170503
  Transmission Date: 20170830
  Serious: Yes (Hospitalization)
  Sender: FDA-Public Use
  Company Number: US-ALEXION PHARMACEUTICALS INC.-A201700040

PATIENT
  Age: 43 Year
  Sex: Female
  Weight: 96.4 kg

DRUGS (12)
  1. ATG                                /00575401/ [Concomitant]
     Active Substance: LAPINE T-LYMPHOCYTE IMMUNE GLOBULIN
     Indication: APLASTIC ANAEMIA
     Dosage: UNK
     Route: 065
     Dates: start: 20161021
  2. PENTAM [Concomitant]
     Active Substance: PENTAMIDINE ISETHIONATE
     Indication: INFECTION PROPHYLAXIS
     Dosage: UNK, QMONTH
     Route: 065
     Dates: start: 20161021
  3. FLUC                               /00780601/ [Concomitant]
     Indication: INFECTION PROPHYLAXIS
     Route: 065
  4. CYCLOSPORIN [Concomitant]
     Active Substance: CYCLOSPORINE
     Indication: APLASTIC ANAEMIA
     Dosage: UNK
     Route: 065
     Dates: start: 20161021
  5. ECULIZUMAB [Suspect]
     Active Substance: ECULIZUMAB
     Indication: HAEMOLYTIC URAEMIC SYNDROME
     Dosage: 154.3 ML/HR
     Route: 042
     Dates: start: 20161010, end: 20161017
  6. ACY [Concomitant]
     Indication: INFECTION PROPHYLAXIS
     Route: 065
  7. ECULIZUMAB [Suspect]
     Active Substance: ECULIZUMAB
     Dosage: 900 MG, SINGLE, (154.3 ML/HR)
     Route: 042
     Dates: start: 20170102, end: 20170102
  8. CIPRO [Concomitant]
     Active Substance: CIPROFLOXACIN HYDROCHLORIDE
     Indication: INFECTION PROPHYLAXIS
     Route: 065
  9. ECULIZUMAB [Suspect]
     Active Substance: ECULIZUMAB
     Dosage: 308.6 ML/HR
     Route: 042
     Dates: start: 20161018, end: 20161021
  10. ECULIZUMAB [Suspect]
     Active Substance: ECULIZUMAB
     Dosage: 900 MG, SINGLE, (154.3 ML/HR)
     Route: 042
     Dates: start: 20170109, end: 20170109
  11. ECULIZUMAB [Suspect]
     Active Substance: ECULIZUMAB
     Dosage: 900 MG, SINGLE, (308.5 ML/HR)
     Route: 042
     Dates: start: 20170117, end: 20170117
  12. ECULIZUMAB [Suspect]
     Active Substance: ECULIZUMAB
     Dosage: 900 MG, SINGLE, (309 ML/HR)
     Route: 042
     Dates: start: 20170123, end: 20170123

REACTIONS (1)
  - Vascular graft occlusion [Not Recovered/Not Resolved]

NARRATIVE: CASE EVENT DATE: 20161227
